FAERS Safety Report 24927182 (Version 1)
Quarter: 2025Q1

REPORT INFORMATION
  Report Type: Report from Study
  Country: US (occurrence: US)
  Receive Date: 20250205
  Receipt Date: 20250205
  Transmission Date: 20250409
  Serious: Yes (Death, Other)
  Sender: GILEAD
  Company Number: US-GILEAD-2025-0702582

PATIENT
  Age: 75 Year
  Sex: Female

DRUGS (1)
  1. TENOFOVIR ALAFENAMIDE [Suspect]
     Active Substance: TENOFOVIR ALAFENAMIDE
     Indication: Product used for unknown indication
     Dosage: 25MG ONE TABLET BY MOUTH DAILY IN THE MORNING
     Route: 048
     Dates: start: 20250109, end: 20250131

REACTIONS (1)
  - Death [Fatal]
